FAERS Safety Report 25110773 (Version 1)
Quarter: 2025Q1

REPORT INFORMATION
  Report Type: Spontaneous
  Country: AR (occurrence: AR)
  Receive Date: 20250324
  Receipt Date: 20250324
  Transmission Date: 20250408
  Serious: Yes (Death)
  Sender: CHIESI
  Company Number: AR-CHIESI-2025CHF01882

PATIENT
  Sex: Male

DRUGS (1)
  1. FILSUVEZ [Suspect]
     Active Substance: BIRCH TRITERPENES
     Indication: Product used for unknown indication

REACTIONS (1)
  - Death [Fatal]
